FAERS Safety Report 8895734 (Version 1)
Quarter: 2012Q4

REPORT INFORMATION
  Report Type: Report from Study
  Country: JP (occurrence: JP)
  Receive Date: 20121108
  Receipt Date: 20121108
  Transmission Date: 20130627
  Serious: Yes (Other)
  Sender: FDA-Public Use
  Company Number: JP-009507513-2012SP018707

PATIENT
  Age: 59 Year
  Sex: Male
  Weight: 64 kg

DRUGS (21)
  1. PEGINTERFERON ALFA-2B [Suspect]
     Indication: HEPATITIS C
     Dosage: 1.5 ?g/kg, QW
     Route: 058
     Dates: start: 20120306, end: 20120313
  2. REBETOL [Suspect]
     Indication: HEPATITIS C
     Dosage: 800 mg, QD
     Route: 048
     Dates: start: 20120306, end: 20120309
  3. REBETOL [Suspect]
     Dosage: 600 mg, QD
     Route: 048
     Dates: start: 20120310, end: 20120315
  4. TELAVIC [Suspect]
     Indication: HEPATITIS C
     Dosage: 2250 mg, QD
     Route: 048
     Dates: start: 20120306, end: 20120315
  5. DEPAS [Concomitant]
     Indication: INSOMNIA
     Dosage: UPDATE (07JUN2012):DAILY DOSE UNKNOWN, REPORTER INDICATION
     Route: 048
  6. CARNACULIN [Concomitant]
     Indication: HYPERTENSION
     Dosage: UPDATE (07JUN2012): DAILY DOSE UNKNOWN, REPORTER INDICATION
     Route: 048
  7. XALATAN [Concomitant]
     Indication: GLAUCOMA
     Dosage: Before it kneads both eyes once
     Route: 047
  8. VOLTAREN [Concomitant]
     Indication: HEADACHE
     Dosage: UPDATE (07JUN2012): DAILY DOSE UNKNOWN AND REPORTER INDICATION
     Route: 048
     Dates: end: 20120314
  9. VOLTAREN [Concomitant]
     Indication: BACK PAIN
  10. MUCOSTA [Concomitant]
     Indication: GASTRITIS
     Dosage: UPDATE (07JUN2012): DAILY DOSE UNKNOWN AND REPORTER INDICATION
     Route: 048
  11. HALCION [Concomitant]
     Indication: INSOMNIA
     Dosage: UPDATE (07JUN2012): DAILY DOSE UNKNOWN AND REPORTER INDICATION
     Route: 048
  12. OLMETEC [Concomitant]
     Indication: HYPERTENSION
     Dosage: UPDATE (07JUN2012): DAILY DOSE UNKNOWN AND REPORTER INDICATION
     Route: 048
  13. LOXONIN [Concomitant]
     Indication: BACK PAIN
     Dosage: FORMULATION: TAP UPDATE (07JUN2012):ONE SHEET A DAY (DAILY DOSE UNKNOWN), REPORTER INDICATION
     Route: 061
  14. SODIUM CHLORIDE [Concomitant]
     Indication: PRODUCT USED FOR UNKNOWN INDICATION
     Dosage: UPDATE (07JUN2012): FORMULATION: UNSPECIFIED INJECTION
     Route: 042
     Dates: start: 20120314, end: 20120315
  15. SODIUM CHLORIDE [Concomitant]
     Dosage: UPDATE (07JUN2012): FORMULATION: UNSPECIFIED INJECTION
     Route: 042
     Dates: start: 20120316, end: 20120316
  16. SODIUM CHLORIDE [Concomitant]
     Dosage: UPDATE (07JUN2012): UNSPECIFIED INJECTION
     Route: 042
     Dates: start: 20120318, end: 20120318
  17. SERENACE [Concomitant]
     Indication: PRODUCT USED FOR UNKNOWN INDICATION
     Dosage: UPDATE (07JUN2012): IV UNSPECIFIED
     Route: 042
     Dates: start: 20120314, end: 20120315
  18. SERENACE [Concomitant]
     Dosage: UPDATE (07JUN2012): IV UNSPECIFIED
     Route: 042
     Dates: start: 20120316, end: 20120316
  19. SERENACE [Concomitant]
     Dosage: UPDATE (07JUN2012): UNSPECIFED IV
     Route: 042
     Dates: start: 20120318, end: 20120318
  20. HEPAFLUSH [Concomitant]
     Dosage: UPDATE (07JUN2012): UNSPCIFIED IV
     Route: 042
     Dates: start: 20120316, end: 20120321
  21. CALONAL [Concomitant]
     Indication: HEADACHE
     Dosage: It is a single use during 2T(200) day
     Route: 048
     Dates: start: 20120320

REACTIONS (4)
  - Renal failure acute [Recovering/Resolving]
  - Somnolence [Recovering/Resolving]
  - Renal tubular necrosis [Recovering/Resolving]
  - Escherichia urinary tract infection [Recovering/Resolving]
